FAERS Safety Report 20065903 (Version 1)
Quarter: 2021Q4

REPORT INFORMATION
  Report Type: Spontaneous
  Country: US (occurrence: US)
  Receive Date: 20211114
  Receipt Date: 20211114
  Transmission Date: 20220304
  Serious: Yes (Hospitalization)
  Sender: FDA-Public Use
  Company Number: US-TEVA-2021-US-1976748

PATIENT
  Age: 57 Year
  Sex: Male

DRUGS (1)
  1. ALBUTEROL SULFATE [Suspect]
     Active Substance: ALBUTEROL SULFATE
     Dosage: INHALATION - AEROSOL

REACTIONS (3)
  - COVID-19 [Unknown]
  - Device delivery system issue [Unknown]
  - Illness [Unknown]

NARRATIVE: CASE EVENT DATE: 20210101
